FAERS Safety Report 5036335-1 (Version None)
Quarter: 2006Q2

REPORT INFORMATION
  Report Type: 
  Country: None (occurrence: None)
  Receive Date: 20060601
  Receipt Date: 20050414
  Transmission Date: 20061013
  Serious: Yes (Death)
  Sender: FDA-Public Use
  Company Number: 402101

PATIENT
  Age: 36 Year
  Sex: Male
  Weight: 90.7 kg

DRUGS (1)
  1. LARIAM [Suspect]
     Indication: MALARIA PROPHYLAXIS
     Dosage: ORAL
     Route: 048
     Dates: start: 20040715

REACTIONS (21)
  - ABDOMINAL PAIN UPPER [None]
  - ANOREXIA [None]
  - ANURIA [None]
  - BALANCE DISORDER [None]
  - CHILLS [None]
  - COUGH [None]
  - DIARRHOEA [None]
  - DIZZINESS [None]
  - EAR CONGESTION [None]
  - EAR DISORDER [None]
  - EYE DISORDER [None]
  - HEADACHE [None]
  - LOCAL SWELLING [None]
  - MALARIA [None]
  - NAUSEA [None]
  - PHARYNGOLARYNGEAL PAIN [None]
  - PSYCHIATRIC SYMPTOM [None]
  - PYREXIA [None]
  - RESPIRATORY RATE INCREASED [None]
  - SWELLING FACE [None]
  - VOMITING [None]
